FAERS Safety Report 17996180 (Version 2)
Quarter: 2020Q3

REPORT INFORMATION
  Report Type: Spontaneous
  Country: US (occurrence: US)
  Receive Date: 20200708
  Receipt Date: 20200908
  Transmission Date: 20201103
  Serious: Yes (Other)
  Sender: FDA-Public Use
  Company Number: US-BAYER-2020-131641

PATIENT
  Age: 39 Year
  Sex: Male

DRUGS (2)
  1. STIVARGA [Suspect]
     Active Substance: REGORAFENIB
     Indication: COLORECTAL CANCER
     Dosage: 40 MG, QD
     Route: 048
     Dates: start: 20200626, end: 20200627
  2. STIVARGA [Suspect]
     Active Substance: REGORAFENIB
     Indication: COLORECTAL CANCER
     Dosage: 40 MG, QD
     Route: 048
     Dates: start: 202006

REACTIONS (11)
  - Amnesia [None]
  - Central nervous system lesion [None]
  - Posterior reversible encephalopathy syndrome [Not Recovered/Not Resolved]
  - Confusional state [Not Recovered/Not Resolved]
  - Abnormal loss of weight [None]
  - Memory impairment [None]
  - Oral candidiasis [Recovered/Resolved]
  - Off label use [None]
  - Oral candidiasis [Not Recovered/Not Resolved]
  - Thinking abnormal [Not Recovered/Not Resolved]
  - Mouth injury [Not Recovered/Not Resolved]

NARRATIVE: CASE EVENT DATE: 202006
